FAERS Safety Report 6124220-3 (Version None)
Quarter: 2009Q1

REPORT INFORMATION
  Report Type: 
  Country: None (occurrence: None)
  Receive Date: 20090319
  Receipt Date: 20090312
  Transmission Date: 20090719
  Serious: Yes (Hospitalization)
  Sender: FDA-Public Use
  Company Number: SE-BAXTER-2009BH003677

PATIENT
  Sex: Male

DRUGS (4)
  1. ENDOXAN BAXTER [Suspect]
     Indication: PULMONARY FIBROSIS
     Route: 042
     Dates: start: 20090211, end: 20090211
  2. SELOKEN ZOC [Concomitant]
  3. PREDNISOLONE [Concomitant]
  4. FURIX [Concomitant]

REACTIONS (1)
  - PULMONARY OEDEMA [None]
